FAERS Safety Report 9457256 (Version 1)
Quarter: 2013Q3

REPORT INFORMATION
  Report Type: Spontaneous
  Country: ES (occurrence: None)
  Receive Date: 20130812
  Receipt Date: 20130812
  Transmission Date: 20140515
  Serious: Yes (Death, Hospitalization)
  Sender: FDA-Public Use
  Company Number: AG-2012-1269

PATIENT
  Age: 81 Year
  Sex: Male
  Weight: 69 kg

DRUGS (2)
  1. CHLORAMBUCIL [Suspect]
     Indication: CHRONIC LYMPHOCYTIC LEUKAEMIA
     Dosage: LAST DOSE PRIOR TO THE EVENT.
     Dates: start: 20110714
  2. RITUXIMAB [Suspect]
     Indication: CHRONIC LYMPHOCYTIC LEUKAEMIA
     Dosage: LAST DOSE PRIOR TO EVENT
     Dates: start: 20110714, end: 201112

REACTIONS (8)
  - Multi-organ failure [None]
  - Anaemia [None]
  - Jaundice [None]
  - Increased tendency to bruise [None]
  - Pancytopenia [None]
  - Renal failure [None]
  - Coagulopathy [None]
  - Liver function test abnormal [None]
